FAERS Safety Report 5322810-9 (Version None)
Quarter: 2007Q2

REPORT INFORMATION
  Report Type: 
  Country: None (occurrence: None)
  Receive Date: 20070221
  Receipt Date: 20061213
  Transmission Date: 20071010
  Serious: Yes (Other)
  Sender: FDA-Public Use
  Company Number: PHEH2006US14861

PATIENT
  Age: 45 Year
  Sex: Male
  Weight: 86.2 kg

DRUGS (1)
  1. DIOVAN [Suspect]
     Dosage: ORAL
     Route: 048
     Dates: start: 20060929, end: 20061113

REACTIONS (1)
  - ANGIOEDEMA [None]
